FAERS Safety Report 9114027 (Version 1)
Quarter: 2013Q1

REPORT INFORMATION
  Report Type: Spontaneous
  Country: US (occurrence: None)
  Receive Date: 20130220
  Receipt Date: 20130220
  Transmission Date: 20140127
  Serious: Yes (Hospitalization)
  Sender: FDA-Public Use
  Company Number: None

PATIENT
  Sex: Female
  Weight: 12.2 kg

DRUGS (2)
  1. CYCLOPHOSPHAMIDE [Suspect]
  2. ETOPOSIDE [Suspect]

REACTIONS (5)
  - Pyrexia [None]
  - Neutropenia [None]
  - Tachycardia [None]
  - Septic shock [None]
  - Tachypnoea [None]
